FAERS Safety Report 8009809-9 (Version None)
Quarter: 2011Q4

REPORT INFORMATION
  Report Type: 
  Country: None (occurrence: None)
  Receive Date: 20111228
  Receipt Date: 20110927
  Transmission Date: 20120403
  Serious: No
  Sender: FDA-Public Use
  Company Number: US-BAYER-2011-092304

PATIENT
  Age: 73 Year
  Sex: Male

DRUGS (2)
  1. CIPROFLOXACIN [Suspect]
     Indication: INFECTION
  2. CIPROFLOXACIN [Suspect]
     Indication: BIOPSY PROSTATE
     Dosage: 500 MG, BID
     Route: 048
     Dates: start: 20110801

REACTIONS (1)
  - BLOOD PH DECREASED [None]
